FAERS Safety Report 7786152-4 (Version None)
Quarter: 2011Q3

REPORT INFORMATION
  Report Type: 
  Country: None (occurrence: None)
  Receive Date: 20110929
  Receipt Date: 20110916
  Transmission Date: 20111222
  Serious: Yes (Other)
  Sender: FDA-Public Use
  Company Number: US-PFIZER INC-2011228804

PATIENT
  Sex: Female

DRUGS (2)
  1. USTEKINUMAB [Suspect]
     Indication: PSORIATIC ARTHROPATHY
     Route: 058
  2. IBUPROFEN [Suspect]
     Route: 048

REACTIONS (3)
  - INFECTION [None]
  - GASTROOESOPHAGEAL REFLUX DISEASE [None]
  - GASTRITIS EROSIVE [None]
